FAERS Safety Report 21631497 (Version 2)
Quarter: 2023Q1

REPORT INFORMATION
  Report Type: Spontaneous
  Country: CA (occurrence: CA)
  Receive Date: 20221123
  Receipt Date: 20230127
  Transmission Date: 20230418
  Serious: Yes (Death, Life-Threatening)
  Sender: FDA-Public Use
  Company Number: CA-SPECGX-T202201993

PATIENT
  Age: 59 Year
  Sex: Female
  Weight: 54 kg

DRUGS (14)
  1. METHADOSE [Suspect]
     Active Substance: METHADONE HYDROCHLORIDE
     Indication: Cancer pain
     Dosage: 10 MILLIGRAM, BID
     Route: 065
  2. METHADOSE [Suspect]
     Active Substance: METHADONE HYDROCHLORIDE
     Dosage: 15 MILLIGRAM, TID (10 MG TWICE DAILY AND 5 MG AT BEDTIME)
     Route: 065
  3. DEXAMETHASONE [Suspect]
     Active Substance: DEXAMETHASONE
     Indication: Cancer pain
     Dosage: 4 MILLIGRAM, TID
     Route: 065
  4. DIAZEPAM [Suspect]
     Active Substance: DIAZEPAM
     Indication: Cancer pain
     Dosage: 5 MILLIGRAM
     Route: 065
  5. GABAPENTIN [Suspect]
     Active Substance: GABAPENTIN
     Indication: Cancer pain
     Dosage: 2100 MILLIGRAM, QD (900 MG TWICE DAILY AND 300 MG AT NOON)
     Route: 065
  6. GABAPENTIN [Suspect]
     Active Substance: GABAPENTIN
     Dosage: 900 MILLIGRAM, Q12H
     Route: 065
  7. MORPHINE SULFATE [Suspect]
     Active Substance: MORPHINE SULFATE
     Indication: Cancer pain
     Dosage: UNK (19-40 MG/H WITH BOLUSES OF 10-20 MG EVERY 20 MINUTES UP TO A MAXIMUM OF 3 BOLUSES PER HOUR)
     Route: 058
  8. MORPHINE SULFATE [Suspect]
     Active Substance: MORPHINE SULFATE
     Dosage: 5 MILLIGRAM, HR
     Route: 058
  9. MORPHINE SULFATE [Suspect]
     Active Substance: MORPHINE SULFATE
     Dosage: UNK, (18MG/HR BOLUS 2 MG HOURLY AS REQUIRED)
     Route: 058
  10. MORPHINE SULFATE [Suspect]
     Active Substance: MORPHINE SULFATE
     Dosage: UNK
     Route: 058
  11. ROPIVACAINE [Suspect]
     Active Substance: ROPIVACAINE
     Indication: Pain
     Dosage: 20 ML OF 0.5%
     Route: 065
  12. ROPIVACAINE [Suspect]
     Active Substance: ROPIVACAINE
     Dosage: 0.2% ROPIVACAINE AL 10 ML/H FOR THE FIRST 3 HOURS, REDUCED TO 5 ML/H FOR THE REMAINING PERIOD WITH A
     Route: 065
  13. ROPIVACAINE [Suspect]
     Active Substance: ROPIVACAINE
     Dosage: 30 MILLIGRAM, 0.2%
     Route: 065
  14. ROPIVACAINE [Suspect]
     Active Substance: ROPIVACAINE
     Dosage: 10 MILLIGRAM, HR, 0.2%
     Route: 065

REACTIONS (4)
  - Disease progression [Fatal]
  - Breast cancer metastatic [Fatal]
  - Therapy non-responder [Unknown]
  - Drug ineffective [Unknown]
